FAERS Safety Report 18272486 (Version 1)
Quarter: 2020Q3

REPORT INFORMATION
  Report Type: Spontaneous
  Country: FR (occurrence: FR)
  Receive Date: 20200916
  Receipt Date: 20200916
  Transmission Date: 20201103
  Serious: Yes (Life-Threatening)
  Sender: FDA-Public Use
  Company Number: FR-ACCORD-201145

PATIENT
  Age: 59 Year
  Sex: Female
  Weight: 76 kg

DRUGS (8)
  1. ESCITALOPRAM [Suspect]
     Active Substance: ESCITALOPRAM OXALATE
     Dosage: 13 CP OF 10 MG
     Route: 048
     Dates: start: 20200807, end: 20200807
  2. LANSOPRAZOLE. [Suspect]
     Active Substance: LANSOPRAZOLE
     Dosage: NOT SPECIFIED
     Route: 048
     Dates: start: 20200807, end: 20200807
  3. SERESTA [Suspect]
     Active Substance: OXAZEPAM
     Dosage: STRENGTH: 10 MG
     Route: 048
     Dates: start: 20200807, end: 20200807
  4. ALPRAZOLAM. [Suspect]
     Active Substance: ALPRAZOLAM
     Dosage: 33 CP OF 0.5 MG
     Route: 048
     Dates: start: 20200807, end: 20200807
  5. ZOPICLONE [Suspect]
     Active Substance: ZOPICLONE
     Dosage: 14 CP OF 7.5 MG
     Route: 048
     Dates: start: 20200807, end: 20200807
  6. DOLIPRANE [Suspect]
     Active Substance: ACETAMINOPHEN
     Dosage: STRENGTH: 1000 MG
     Route: 048
     Dates: start: 20200807, end: 20200807
  7. GLICLAZIDE [Suspect]
     Active Substance: GLICLAZIDE
     Dosage: NOT SPECIFIED
     Route: 048
     Dates: start: 20200807, end: 20200807
  8. LOXAPAC [Suspect]
     Active Substance: LOXAPINE
     Dosage: STRENGTH: 25 MG
     Route: 048
     Dates: start: 20200807, end: 20200807

REACTIONS (2)
  - Poisoning deliberate [Unknown]
  - Coma [Recovered/Resolved]

NARRATIVE: CASE EVENT DATE: 20200807
